FAERS Safety Report 19948907 (Version 2)
Quarter: 2021Q4

REPORT INFORMATION
  Report Type: Spontaneous
  Country: US (occurrence: US)
  Receive Date: 20211012
  Receipt Date: 20211020
  Transmission Date: 20220303
  Serious: No
  Sender: FDA-Public Use
  Company Number: US-AMGEN-USASP2021153329

PATIENT
  Age: 52 Year
  Sex: Male

DRUGS (1)
  1. REPATHA [Suspect]
     Active Substance: EVOLOCUMAB
     Indication: Blood cholesterol abnormal
     Dosage: UNK, Q2WK
     Route: 065
     Dates: start: 2021

REACTIONS (5)
  - Sensitive skin [Unknown]
  - Nerve injury [Unknown]
  - Burning sensation [Unknown]
  - Pruritus [Unknown]
  - Sacral pain [Recovered/Resolved]

NARRATIVE: CASE EVENT DATE: 20210101
